FAERS Safety Report 5476803-1 (Version None)
Quarter: 2007Q4

REPORT INFORMATION
  Report Type: 
  Country: None (occurrence: None)
  Receive Date: 20071003
  Receipt Date: 20071003
  Transmission Date: 20080405
  Serious: Yes (Other)
  Sender: FDA-Public Use
  Company Number: None

PATIENT
  Age: 45 Year
  Sex: Female
  Weight: 85.7298 kg

DRUGS (1)
  1. RIBAVIRIN [Suspect]
     Indication: HEPATITIS C
     Dosage: 200MG 3 AM 3 PM PO
     Route: 048

REACTIONS (1)
  - UNEVALUABLE EVENT [None]
